FAERS Safety Report 7406492-8 (Version None)
Quarter: 2011Q2

REPORT INFORMATION
  Report Type: 
  Country: None (occurrence: None)
  Receive Date: 20110406
  Receipt Date: 20110406
  Transmission Date: 20111010
  Serious: Yes (Other)
  Sender: FDA-Public Use
  Company Number: None

PATIENT
  Age: 58 Year
  Sex: Female
  Weight: 65.9 kg

DRUGS (1)
  1. BUPROPION 12 SR TAB 150MG MYLAN [Suspect]
     Indication: DEPRESSION
     Dosage: 150MG 2XDAILY ORAL
     Route: 048
     Dates: start: 20101228, end: 20101229

REACTIONS (3)
  - DEPRESSION [None]
  - PRODUCT SUBSTITUTION ISSUE [None]
  - DRUG INEFFECTIVE [None]
